FAERS Safety Report 12569904 (Version 1)
Quarter: 2016Q3

REPORT INFORMATION
  Report Type: Spontaneous
  Country: FR (occurrence: FR)
  Receive Date: 20160719
  Receipt Date: 20160719
  Transmission Date: 20161109
  Serious: Yes (Hospitalization, Other)
  Sender: FDA-Public Use
  Company Number: FR-GLAXOSMITHKLINE-FR2016GSK102478

PATIENT
  Age: 26 Year
  Sex: Male

DRUGS (5)
  1. NICOTINE POLACRILEX [Suspect]
     Active Substance: NICOTINE
     Indication: SMOKING CESSATION THERAPY
     Dosage: UNK
     Route: 048
     Dates: start: 201605, end: 20160620
  2. INEXIUM [Concomitant]
     Active Substance: ESOMEPRAZOLE
  3. NASONEX [Concomitant]
     Active Substance: MOMETASONE FUROATE
  4. NICOTINE UNKNOWN BRAND [Suspect]
     Active Substance: NICOTINE
     Indication: SMOKING CESSATION THERAPY
     Dosage: UNK
     Dates: start: 201605, end: 20160620
  5. AERIUS [Concomitant]
     Active Substance: DESLORATADINE
     Dosage: UNK
     Dates: start: 201505

REACTIONS (1)
  - Reversible cerebral vasoconstriction syndrome [Unknown]

NARRATIVE: CASE EVENT DATE: 20160610
